FAERS Safety Report 11319382 (Version 1)
Quarter: 2015Q3

REPORT INFORMATION
  Report Type: Spontaneous
  Country: CA (occurrence: CA)
  Receive Date: 20150729
  Receipt Date: 20150729
  Transmission Date: 20151125
  Serious: Yes (Other)
  Sender: FDA-Public Use
  Company Number: PHHY2015CA087471

PATIENT

DRUGS (2)
  1. FEMARA [Suspect]
     Active Substance: LETROZOLE
     Indication: FOETAL EXPOSURE DURING PREGNANCY
     Dosage: 2.5 MG ORALLY DAILY FOR 5 DAYS PRIOR TO DISCHARGE (MATERNAL DOSE)
     Route: 064
  2. LEUPROLIDE ACETATE. [Suspect]
     Active Substance: LEUPROLIDE ACETATE
     Indication: FOETAL EXPOSURE DURING PREGNANCY
     Dosage: 11.25 MG INTRAMUSCULAR ? 1 (MATERNAL DOSE)
     Route: 064

REACTIONS (2)
  - Foetal exposure during pregnancy [Unknown]
  - Premature baby [Unknown]
